FAERS Safety Report 12807298 (Version 1)
Quarter: 2016Q4

REPORT INFORMATION
  Report Type: Spontaneous
  Country: DK (occurrence: DK)
  Receive Date: 20161004
  Receipt Date: 20161004
  Transmission Date: 20170207
  Serious: Yes (Other)
  Sender: FDA-Public Use
  Company Number: DK-PFIZER INC-2016461449

PATIENT
  Age: 61 Year
  Sex: Male
  Weight: 74 kg

DRUGS (5)
  1. REMSIMA [Suspect]
     Active Substance: INFLIXIMAB
     Indication: RHEUMATOID ARTHRITIS
     Dosage: 200 MG, UNK,(3.5714 MG (200 MG,1 IN 8 W)
     Route: 042
     Dates: start: 20150624, end: 20150916
  2. REMICADE [Suspect]
     Active Substance: INFLIXIMAB
     Indication: RHEUMATOID ARTHRITIS
     Dosage: 200 MG, UNK, 3.5714 MG (200 MG,1 IN 8 W)
     Route: 042
     Dates: start: 20091026, end: 20150623
  3. METEX [Suspect]
     Active Substance: METFORMIN HYDROCHLORIDE
     Indication: RHEUMATOID ARTHRITIS
     Dosage: 15 MG, WEEKLY, 2.1429 MG (15 MG,1 IN 1 W)
     Route: 058
     Dates: start: 20120419
  4. METHOTREXATE SODIUM. [Suspect]
     Active Substance: METHOTREXATE SODIUM
     Indication: RHEUMATOID ARTHRITIS
     Dosage: UNK
     Route: 058
     Dates: start: 20070615, end: 20160916
  5. FOLIMET [Concomitant]
     Indication: FOLATE DEFICIENCY
     Dosage: UNK

REACTIONS (1)
  - Hodgkin^s disease lymphocyte depletion type stage IV [Not Recovered/Not Resolved]

NARRATIVE: CASE EVENT DATE: 201601
